FAERS Safety Report 6715981 (Version 3)
Quarter: 2020Q4

REPORT INFORMATION
  Report Type: Report from Study
  Country: JP (occurrence: JP)
  Receive Date: 20080801
  Receipt Date: 20201207
  Transmission Date: 20210114
  Serious: Yes (Death, Hospitalization)
  Sender: FDA-Public Use
  Company Number: JP-GILEAD-2008-0017564

PATIENT
  Age: 37 Year
  Sex: Male

DRUGS (7)
  1. TULOBUTEROL [Concomitant]
     Active Substance: TULOBUTEROL
     Indication: ASTHMA
     Dosage: UNK
     Dates: start: 20071006
  2. THEOPHYLLINE [Concomitant]
     Active Substance: THEOPHYLLINE ANHYDROUS
     Indication: ASTHMA
     Dosage: UNK
     Dates: start: 20071006
  3. PREDNISOLONE. [Concomitant]
     Active Substance: PREDNISOLONE
     Indication: ASTHMA
     Dosage: UNK
     Dates: start: 20070930
  4. TENOFOVIR DISOPROXIL FUMARATE. [Suspect]
     Active Substance: TENOFOVIR DISOPROXIL FUMARATE
     Indication: HIV INFECTION
     Dosage: 300 MG, QD
     Route: 048
     Dates: start: 20050113
  5. EPIVIR [Suspect]
     Active Substance: LAMIVUDINE
     Indication: HIV INFECTION
     Dosage: 300 MG, QD
     Route: 048
     Dates: start: 20050113
  6. MONTELUKAST SODIUM. [Concomitant]
     Active Substance: MONTELUKAST SODIUM
     Indication: ASTHMA
     Dosage: UNK
     Dates: start: 20071006
  7. STOCRIN [Suspect]
     Active Substance: EFAVIRENZ
     Indication: HIV INFECTION
     Dosage: 600 MG, QD
     Route: 048
     Dates: start: 20050113

REACTIONS (2)
  - Death [Fatal]
  - Asthma [Recovering/Resolving]

NARRATIVE: CASE EVENT DATE: 20070930
